FAERS Safety Report 7471448-6 (Version None)
Quarter: 2011Q2

REPORT INFORMATION
  Report Type: 
  Country: None (occurrence: None)
  Receive Date: 20110511
  Receipt Date: 20110503
  Transmission Date: 20111010
  Serious: Yes (Death, Hospitalization)
  Sender: FDA-Public Use
  Company Number: 2007BI013759

PATIENT
  Age: 53 Year
  Sex: Male

DRUGS (1)
  1. TYSABRI [Suspect]
     Indication: MULTIPLE SCLEROSIS
     Route: 042
     Dates: start: 20070323, end: 20070420

REACTIONS (12)
  - URINARY INCONTINENCE [None]
  - DEPRESSED LEVEL OF CONSCIOUSNESS [None]
  - MULTIPLE SCLEROSIS [None]
  - SKIN DISORDER [None]
  - HYPOXIA [None]
  - SUPRAVENTRICULAR TACHYCARDIA [None]
  - PNEUMONIA [None]
  - URINARY TRACT INFECTION [None]
  - FAILURE TO THRIVE [None]
  - PYREXIA [None]
  - UROSEPSIS [None]
  - LETHARGY [None]
